FAERS Safety Report 6710001-6 (Version None)
Quarter: 2010Q2

REPORT INFORMATION
  Report Type: 
  Country: None (occurrence: None)
  Receive Date: 20100503
  Receipt Date: 20100503
  Transmission Date: 20101027
  Serious: Yes (Other)
  Sender: FDA-Public Use
  Company Number: None

PATIENT
  Sex: Male
  Weight: 13.1543 kg

DRUGS (6)
  1. CHILDREN'S TYLENOL CHILDREN'S  MCNEIL PPC [Suspect]
     Indication: PYREXIA
     Dosage: 1 TSP 12 HOURS PO
     Route: 048
     Dates: start: 20100418, end: 20100425
  2. CHILDREN'S TYLENOL CHILDREN'S  MCNEIL PPC [Suspect]
     Indication: RHINORRHOEA
     Dosage: 1 TSP 12 HOURS PO
     Route: 048
     Dates: start: 20100418, end: 20100425
  3. CHILDREN'S TYLENOL CHILDREN'S  MCNEIL PPC [Suspect]
     Indication: VIRAL INFECTION
     Dosage: 1 TSP 12 HOURS PO
     Route: 048
     Dates: start: 20100418, end: 20100425
  4. CHILDREN'S MOTRIN [Suspect]
     Indication: PYREXIA
     Dosage: 1 TSP. 12 HOURS PO
     Route: 048
     Dates: start: 20100418, end: 20100425
  5. CHILDREN'S MOTRIN [Suspect]
     Indication: RHINORRHOEA
     Dosage: 1 TSP. 12 HOURS PO
     Route: 048
     Dates: start: 20100418, end: 20100425
  6. CHILDREN'S MOTRIN [Suspect]
     Indication: VIRAL INFECTION
     Dosage: 1 TSP. 12 HOURS PO
     Route: 048
     Dates: start: 20100418, end: 20100425

REACTIONS (3)
  - PRODUCT QUALITY ISSUE [None]
  - PYREXIA [None]
  - RASH [None]
